FAERS Safety Report 4816571-7 (Version None)
Quarter: 2005Q4

REPORT INFORMATION
  Report Type: 
  Country: None (occurrence: None)
  Receive Date: 20051031
  Receipt Date: 20051031
  Transmission Date: 20060501
  Serious: No
  Sender: FDA-Public Use
  Company Number: None

PATIENT
  Age: 67 Year
  Sex: Male
  Weight: 72.5755 kg

DRUGS (2)
  1. LAMICTAL [Suspect]
     Indication: AFFECTIVE DISORDER
     Dosage: 25 MG DAILY 14 DAYS PO
     Route: 048
     Dates: start: 20051012, end: 20051025
  2. LAMICTAL [Suspect]
     Indication: AFFECTIVE DISORDER
     Dosage: 2 X 25 MG 2 DAYS PO
     Route: 048
     Dates: start: 20051026, end: 20051027

REACTIONS (1)
  - STEVENS-JOHNSON SYNDROME [None]
